FAERS Safety Report 17873219 (Version 1)
Quarter: 2020Q2

REPORT INFORMATION
  Report Type: Not Available
  Country: US (occurrence: US)
  Receive Date: 20200608
  Receipt Date: 20200608
  Transmission Date: 20200714
  Serious: No
  Sender: FDA-Public Use
  Company Number: US-OSMOTICA_PHARMACEUTICAL_US_LLC-POI0573202000305

PATIENT
  Age: 58 Year
  Sex: Female
  Weight: 61.29 kg

DRUGS (7)
  1. OSMOLEX ER [Suspect]
     Active Substance: AMANTADINE
     Indication: PARKINSON^S DISEASE
     Dates: start: 202002
  2. GABAPENTIN. [Concomitant]
     Active Substance: GABAPENTIN
     Indication: SEIZURE
  3. CARBIDOPA/LEVODOPA 10/100 [Concomitant]
     Indication: PARKINSON^S DISEASE
     Dosage: 10 MG AND 100 MG
  4. DILANTIN [Concomitant]
     Active Substance: PHENYTOIN
     Indication: SEIZURE
  5. HYDROCODONE BITARTRATE AND ACETAMINOPHEN [Concomitant]
     Active Substance: ACETAMINOPHEN\HYDROCODONE BITARTRATE
     Indication: OSTEOPOROSIS
     Dosage: 10 MG AND 325 MG
  6. OSMOLEX ER [Suspect]
     Active Substance: AMANTADINE
     Indication: DYSKINESIA
  7. TOPAMAX [Concomitant]
     Active Substance: TOPIRAMATE
     Indication: SEIZURE

REACTIONS (3)
  - Speech disorder [Unknown]
  - Memory impairment [Unknown]
  - Petit mal epilepsy [Unknown]

NARRATIVE: CASE EVENT DATE: 20200414
